FAERS Safety Report 11631997 (Version 1)
Quarter: 2015Q4

REPORT INFORMATION
  Report Type: Spontaneous
  Country: US (occurrence: None)
  Receive Date: 20151014
  Receipt Date: 20151014
  Transmission Date: 20160304
  Serious: No
  Sender: FDA-Public Use
  Company Number: None

PATIENT
  Age: 53 Year
  Sex: Female

DRUGS (1)
  1. EXJADE [Suspect]
     Active Substance: DEFERASIROX
     Indication: IRON OVERLOAD
     Route: 048
     Dates: start: 20140722, end: 20150828

REACTIONS (7)
  - Anal spasm [None]
  - Gastrointestinal disorder [None]
  - Loose tooth [None]
  - Proctalgia [None]
  - Defaecation urgency [None]
  - Gastrointestinal motility disorder [None]
  - Mastication disorder [None]
